FAERS Safety Report 25244972 (Version 1)
Quarter: 2025Q2

REPORT INFORMATION
  Report Type: Spontaneous
  Country: KR (occurrence: KR)
  Receive Date: 20250428
  Receipt Date: 20250428
  Transmission Date: 20250716
  Serious: Yes (Death)
  Sender: MYLAN
  Company Number: KR-MYLANLABS-2025M1034659

PATIENT
  Age: 50 Year
  Sex: Female

DRUGS (16)
  1. ZELDOX [Suspect]
     Active Substance: ZIPRASIDONE
     Indication: Product used for unknown indication
  2. ZELDOX [Suspect]
     Active Substance: ZIPRASIDONE
     Route: 065
  3. ZELDOX [Suspect]
     Active Substance: ZIPRASIDONE
     Route: 065
  4. ZELDOX [Suspect]
     Active Substance: ZIPRASIDONE
  5. IBUPROFEN [Concomitant]
     Active Substance: IBUPROFEN
  6. IBUPROFEN [Concomitant]
     Active Substance: IBUPROFEN
     Route: 065
  7. IBUPROFEN [Concomitant]
     Active Substance: IBUPROFEN
     Route: 065
  8. IBUPROFEN [Concomitant]
     Active Substance: IBUPROFEN
  9. CEFUROXIME SODIUM [Concomitant]
     Active Substance: CEFUROXIME SODIUM
  10. CEFUROXIME SODIUM [Concomitant]
     Active Substance: CEFUROXIME SODIUM
     Route: 065
  11. CEFUROXIME SODIUM [Concomitant]
     Active Substance: CEFUROXIME SODIUM
     Route: 065
  12. CEFUROXIME SODIUM [Concomitant]
     Active Substance: CEFUROXIME SODIUM
  13. LORAZEPAM [Concomitant]
     Active Substance: LORAZEPAM
  14. LORAZEPAM [Concomitant]
     Active Substance: LORAZEPAM
     Route: 065
  15. LORAZEPAM [Concomitant]
     Active Substance: LORAZEPAM
     Route: 065
  16. LORAZEPAM [Concomitant]
     Active Substance: LORAZEPAM

REACTIONS (2)
  - Suicide attempt [Fatal]
  - Completed suicide [Fatal]
